FAERS Safety Report 5444882-3 (Version None)
Quarter: 2007Q3

REPORT INFORMATION
  Report Type: 
  Country: None (occurrence: None)
  Receive Date: 20070904
  Receipt Date: 20070904
  Transmission Date: 20080115
  Serious: Yes (Hospitalization)
  Sender: FDA-Public Use
  Company Number: None

PATIENT
  Age: 65 Year
  Sex: Female

DRUGS (2)
  1. MAXZIDE [Suspect]
     Indication: HYPERTENSION
     Dosage: 37.5/25 MG  DAILY  PO
     Route: 048
  2. COMPAZINE [Concomitant]

REACTIONS (9)
  - DEHYDRATION [None]
  - DIARRHOEA [None]
  - DIZZINESS [None]
  - MALAISE [None]
  - NAUSEA [None]
  - PYELONEPHRITIS [None]
  - RESPIRATORY ALKALOSIS [None]
  - URINARY TRACT INFECTION [None]
  - VOMITING [None]
